FAERS Safety Report 7800789-5 (Version None)
Quarter: 2011Q4

REPORT INFORMATION
  Report Type: 
  Country: None (occurrence: None)
  Receive Date: 20111006
  Receipt Date: 20110930
  Transmission Date: 20120403
  Serious: Yes (Other)
  Sender: FDA-Public Use
  Company Number: US-B.I. PHARMACEUTICALS,INC./RIDGEFIELD-2011-BP-23439PF

PATIENT
  Sex: Male
  Weight: 101.59 kg

DRUGS (10)
  1. LYRICA [Suspect]
     Indication: PAIN
     Dosage: 150 MG
     Route: 048
     Dates: start: 20101101
  2. LYRICA [Suspect]
  3. VICODIN [Concomitant]
  4. ALBUTEROL [Concomitant]
  5. LYRICA [Suspect]
     Indication: ARTHRITIS
  6. VALIUM [Concomitant]
  7. SPIRIVA [Suspect]
  8. LYRICA [Suspect]
     Indication: NECK PAIN
  9. ROBAXIN [Concomitant]
  10. LYRICA [Suspect]
     Indication: BACK PAIN

REACTIONS (7)
  - PAIN IN EXTREMITY [None]
  - BACK PAIN [None]
  - NECK PAIN [None]
  - MALAISE [None]
  - IMPAIRED WORK ABILITY [None]
  - PAIN [None]
  - SOMNOLENCE [None]
